FAERS Safety Report 7178142-X (Version None)
Quarter: 2010Q4

REPORT INFORMATION
  Report Type: 
  Country: None (occurrence: None)
  Receive Date: 20101220
  Receipt Date: 20101210
  Transmission Date: 20110411
  Serious: Yes (Hospitalization)
  Sender: FDA-Public Use
  Company Number: B0668733C

PATIENT
  Sex: Male
  Weight: 64 kg

DRUGS (3)
  1. LAPATINIB [Suspect]
     Indication: GASTRIC CANCER
     Dosage: 1250MG PER DAY
     Dates: start: 20100720
  2. OXALIPLATIN [Suspect]
     Indication: GASTRIC CANCER
     Dosage: 240MG THREE TIMES PER WEEK
     Route: 042
     Dates: start: 20100720
  3. CAPECITABINE [Suspect]
     Indication: GASTRIC CANCER
     Dosage: 1650MG TWICE PER DAY
     Route: 048
     Dates: start: 20100720

REACTIONS (2)
  - DEHYDRATION [None]
  - HAEMOGLOBIN DECREASED [None]
